FAERS Safety Report 8132915-5 (Version None)
Quarter: 2012Q1

REPORT INFORMATION
  Report Type: 
  Country: None (occurrence: None)
  Receive Date: 20120213
  Receipt Date: 20120202
  Transmission Date: 20120608
  Serious: Yes (Other)
  Sender: FDA-Public Use
  Company Number: CH-NAPPMUNDI-DEU-2012-0008579

PATIENT
  Age: 69 Year
  Sex: Male

DRUGS (14)
  1. OXYCODONE HCL [Interacting]
     Dosage: 17 MG, Q4H
     Route: 048
     Dates: start: 20111219, end: 20111227
  2. OXYCODONE HCL [Interacting]
     Dosage: 22 MG, UNK
     Route: 048
     Dates: start: 20111227, end: 20111229
  3. LYRICA [Concomitant]
     Indication: PAIN IN EXTREMITY
     Dosage: 600 MG, DAILY
     Route: 048
     Dates: start: 20111229
  4. LYRICA [Concomitant]
     Dosage: 200 MG, BID
     Route: 048
     Dates: start: 20111213
  5. CARVEDILOL [Concomitant]
     Indication: PRODUCT USED FOR UNKNOWN INDICATION
     Dosage: 3.125 MG, BID
  6. BACTRIM [Concomitant]
     Indication: OSTEOMYELITIS BACTERIAL
     Dosage: 160 MG, TID
     Route: 048
     Dates: start: 20111207
  7. LYRICA [Concomitant]
     Dosage: 150 MG, BID
     Route: 048
     Dates: start: 20110927
  8. OXYCODONE HCL [Interacting]
     Dosage: 8 MG, TID
     Route: 048
     Dates: start: 20111118, end: 20111219
  9. ARIXTRA [Concomitant]
     Indication: PRODUCT USED FOR UNKNOWN INDICATION
     Dosage: 2.5 MG, DAILY
     Route: 058
     Dates: start: 20111101
  10. NORTRYPTILINE [Concomitant]
     Indication: PRODUCT USED FOR UNKNOWN INDICATION
     Dosage: 12.5 MG, SEE TEXT
     Dates: start: 20111229
  11. OXYCODONE HCL [Suspect]
     Indication: PAIN IN EXTREMITY
     Dosage: 13 MG, SEE TEXT
     Route: 048
     Dates: start: 20111118, end: 20111219
  12. MADOPAR LIQ 62.5 [Concomitant]
     Indication: PRODUCT USED FOR UNKNOWN INDICATION
     Dosage: 125 MG, QID
     Route: 048
  13. OXYCODONE HCL [Interacting]
     Dosage: 10 MG, UNK
     Route: 048
     Dates: start: 20111219, end: 20111227
  14. RIFAMPIN [Interacting]
     Indication: OSTEOMYELITIS BACTERIAL
     Dosage: 600 MG, DAILY
     Route: 048
     Dates: start: 20111207

REACTIONS (1)
  - INHIBITORY DRUG INTERACTION [None]
